FAERS Safety Report 8365718-7 (Version None)
Quarter: 2012Q2

REPORT INFORMATION
  Report Type: 
  Country: None (occurrence: None)
  Receive Date: 20120516
  Receipt Date: 20120507
  Transmission Date: 20120825
  Serious: Yes (Other)
  Sender: FDA-Public Use
  Company Number: PA-BRISTOL-MYERS SQUIBB COMPANY-16511529

PATIENT
  Age: 41 Year
  Sex: Male
  Weight: 77 kg

DRUGS (2)
  1. REBIF [Suspect]
     Indication: MULTIPLE SCLEROSIS
     Dosage: 18.8571MCG ADMINISTERED ONLY 2 INJECTIONS FOR WEEK
     Route: 058
  2. METFORMIN HCL [Suspect]
     Indication: TYPE 2 DIABETES MELLITUS

REACTIONS (2)
  - INAPPROPRIATE SCHEDULE OF DRUG ADMINISTRATION [None]
  - MULTIPLE SCLEROSIS RELAPSE [None]
